FAERS Safety Report 9725183 (Version 1)
Quarter: 2013Q4

REPORT INFORMATION
  Report Type: Spontaneous
  Country: US (occurrence: US)
  Receive Date: 20131203
  Receipt Date: 20131203
  Transmission Date: 20140711
  Serious: Yes (Death)
  Sender: FDA-Public Use
  Company Number: US-JNJFOC-20131117867

PATIENT
  Age: 21 Year
  Sex: Female

DRUGS (2)
  1. TYLENOL PM EXTRA STRENGTH [Suspect]
     Indication: SLEEP DISORDER THERAPY
     Route: 048
  2. TYLENOL PM EXTRA STRENGTH [Suspect]
     Indication: PAIN
     Route: 048

REACTIONS (3)
  - Hepatic failure [Fatal]
  - Off label use [Unknown]
  - Product label issue [Unknown]
